FAERS Safety Report 8453581-5 (Version None)
Quarter: 2012Q2

REPORT INFORMATION
  Report Type: 
  Country: None (occurrence: None)
  Receive Date: 20120614
  Receipt Date: 20120607
  Transmission Date: 20120825
  Serious: Yes (Death, Hospitalization, Other)
  Sender: FDA-Public Use
  Company Number: CL-428-2012

PATIENT
  Age: 69 Year
  Sex: Male

DRUGS (4)
  1. KANAMYCIN [Suspect]
  2. PROTON-PUMP INHIBITOR [Concomitant]
  3. METRONIDAZOLE [Suspect]
  4. CEFMETAZOLE [Suspect]
     Dosage: IV
     Route: 042

REACTIONS (8)
  - ASCITES [None]
  - POST PROCEDURAL COMPLICATION [None]
  - ASPARTATE AMINOTRANSFERASE INCREASED [None]
  - ALANINE AMINOTRANSFERASE INCREASED [None]
  - SHOCK [None]
  - POSTOPERATIVE WOUND COMPLICATION [None]
  - PSEUDOMEMBRANOUS COLITIS [None]
  - GASTROINTESTINAL NECROSIS [None]
